FAERS Safety Report 22917181 (Version 3)
Quarter: 2024Q2

REPORT INFORMATION
  Report Type: Spontaneous
  Country: NL (occurrence: NL)
  Receive Date: 20230907
  Receipt Date: 20240405
  Transmission Date: 20240716
  Serious: Yes (Life-Threatening, Hospitalization)
  Sender: FDA-Public Use
  Company Number: None

PATIENT
  Age: 11 Year
  Sex: Male
  Weight: 66 kg

DRUGS (7)
  1. ROCURONIUM [Suspect]
     Active Substance: ROCURONIUM BROMIDE
     Indication: General anaesthesia
     Dosage: 1MG/KG
     Dates: start: 20230302
  2. SUGAMMADEX [Suspect]
     Active Substance: SUGAMMADEX
     Indication: Neuromuscular blockade
     Dosage: 2MG/KG
     Dates: start: 20230302
  3. MORPHINE solution for injection, 1MG/ML / Brand name not specified [Concomitant]
     Indication: Product used for unknown indication
  4. sevoflurane inhalation fluid/gas / Brand name not specified [Concomitant]
     Indication: Product used for unknown indication
     Dosage: INHALATION GAS
  5. diclofenac-sodium solution for injection 25 mg/ml / Brand name not spe [Concomitant]
     Indication: Product used for unknown indication
     Dosage: SOLUTION FOR INJECTION, 25 MG/ML
  6. propofol emulsion for injection 10 mg/ml / Brand name not specified [Concomitant]
     Indication: Product used for unknown indication
     Dosage: EMULSION FOR INJECTION, 10 MG/ML
  7. paracetamol solution for infusion 10 mg/ml / Brand name not specified [Concomitant]
     Indication: Product used for unknown indication
     Dosage: SOLUTION FOR INFUSION, 10 MG/ML

REACTIONS (1)
  - Anaphylactic reaction [Recovered/Resolved]
